FAERS Safety Report 4299731-6 (Version None)
Quarter: 2004Q1

REPORT INFORMATION
  Report Type: 
  Country: None (occurrence: None)
  Receive Date: 20040126
  Receipt Date: 20031114
  Transmission Date: 20041129
  Serious: No
  Sender: FDA-Public Use
  Company Number: USA031152653

PATIENT
  Age: 8 Year
  Sex: Male
  Weight: 40 kg

DRUGS (2)
  1. STRATTERA [Suspect]
     Indication: ATTENTION DEFICIT/HYPERACTIVITY DISORDER
     Dosage: 25 MG/AT NOON
     Dates: start: 20030824
  2. CONCERTA [Concomitant]

REACTIONS (7)
  - AGGRESSION [None]
  - ANGER [None]
  - DECREASED APPETITE [None]
  - DISTURBANCE IN ATTENTION [None]
  - MOOD SWINGS [None]
  - VOMITING [None]
  - WEIGHT DECREASED [None]
